FAERS Safety Report 7749205-2 (Version None)
Quarter: 2011Q3

REPORT INFORMATION
  Report Type: 
  Country: None (occurrence: None)
  Receive Date: 20110914
  Receipt Date: 20110830
  Transmission Date: 20111222
  Serious: Yes (Hospitalization, Other)
  Sender: FDA-Public Use
  Company Number: NL-MYLANLABS-2011S1018428

PATIENT
  Age: 14 Year
  Sex: Female

DRUGS (4)
  1. TACROLIMUS [Concomitant]
     Indication: IMMUNOSUPPRESSION
  2. PREDNISOLONE [Concomitant]
     Indication: IMMUNOSUPPRESSION
  3. CYSTEAMINE /00492501/ [Suspect]
     Indication: CYSTINOSIS
     Dosage: DOSES RANGED FROM 1.0 TO 1.3 MG/M2/DAY
     Route: 065
  4. MYCOPHENOLATE MOFETIL [Concomitant]
     Indication: IMMUNOSUPPRESSION

REACTIONS (3)
  - HAEMATEMESIS [None]
  - COLITIS ULCERATIVE [None]
  - DUODENAL ULCER [None]
